FAERS Safety Report 4560658-3 (Version None)
Quarter: 2005Q1

REPORT INFORMATION
  Report Type: 
  Country: None (occurrence: None)
  Receive Date: 20050121
  Receipt Date: 20050104
  Transmission Date: 20050727
  Serious: Yes (Other)
  Sender: FDA-Public Use
  Company Number: DSA_25435_2004

PATIENT
  Age: 36 Year
  Sex: Female

DRUGS (2)
  1. LORAZEPAM [Suspect]
     Dosage: DF IH
     Route: 055
     Dates: start: 20040707, end: 20040707
  2. ALCOHOL [Suspect]
     Dosage: DF PO
     Route: 048
     Dates: start: 20040707, end: 20040707

REACTIONS (4)
  - ALCOHOL USE [None]
  - DRUG ABUSER [None]
  - INTENTIONAL MISUSE [None]
  - SEXUAL ASSAULT VICTIM [None]
